FAERS Safety Report 6710655-4 (Version None)
Quarter: 2010Q2

REPORT INFORMATION
  Report Type: 
  Country: None (occurrence: None)
  Receive Date: 20100504
  Receipt Date: 20100504
  Transmission Date: 20101027
  Serious: No
  Sender: FDA-Public Use
  Company Number: None

PATIENT
  Sex: Female
  Weight: 54.4316 kg

DRUGS (1)
  1. CIPROFLOXACIN [Suspect]
     Indication: DIARRHOEA
     Dosage: 500 MG 12 HR PO
     Route: 048
     Dates: start: 20100331, end: 20100402

REACTIONS (2)
  - ACTIVITIES OF DAILY LIVING IMPAIRED [None]
  - TENDONITIS [None]
